FAERS Safety Report 19272931 (Version 1)
Quarter: 2021Q2

REPORT INFORMATION
  Report Type: Spontaneous
  Country: AT (occurrence: AT)
  Receive Date: 20210518
  Receipt Date: 20210518
  Transmission Date: 20210717
  Serious: Yes (Hospitalization, Other)
  Sender: FDA-Public Use
  Company Number: AT-SEATTLE GENETICS-2021SGN02717

PATIENT
  Age: 53 Year
  Sex: Female

DRUGS (2)
  1. ADCETRIS [Suspect]
     Active Substance: BRENTUXIMAB VEDOTIN
     Dosage: 1.8 MILLIGRAM/KILOGRAM, Q3WEEKS
     Route: 065
     Dates: start: 201903, end: 202001
  2. ADCETRIS [Suspect]
     Active Substance: BRENTUXIMAB VEDOTIN
     Indication: CUTANEOUS T-CELL LYMPHOMA
     Dosage: 1.8 MILLIGRAM/KILOGRAM, Q3WEEKS
     Route: 065
     Dates: start: 201802

REACTIONS (6)
  - Staphylococcal bacteraemia [Unknown]
  - Otitis externa [Unknown]
  - Cutaneous T-cell lymphoma [Unknown]
  - Pneumonia [Unknown]
  - Pulmonary embolism [Unknown]
  - Catheter site infection [Unknown]

NARRATIVE: CASE EVENT DATE: 201806
